FAERS Safety Report 7859328-5 (Version None)
Quarter: 2011Q4

REPORT INFORMATION
  Report Type: 
  Country: None (occurrence: None)
  Receive Date: 20111027
  Receipt Date: 20111020
  Transmission Date: 20120403
  Serious: Yes (Life-Threatening, Hospitalization)
  Sender: FDA-Public Use
  Company Number: GB-TEVA-305973ISR

PATIENT
  Age: 5 Hour
  Sex: Male
  Weight: 3.69 kg

DRUGS (1)
  1. CITALOPRAM HYDROBROMIDE [Suspect]
     Indication: DEPRESSION
     Dosage: 40 MILLIGRAM;
     Route: 063

REACTIONS (3)
  - OXYGEN SATURATION DECREASED [None]
  - CYANOSIS NEONATAL [None]
  - SOMNAMBULISM [None]
